FAERS Safety Report 4555653-4 (Version None)
Quarter: 2005Q1

REPORT INFORMATION
  Report Type: 
  Country: None (occurrence: None)
  Receive Date: 20050119
  Receipt Date: 20050112
  Transmission Date: 20050727
  Serious: Yes (Death)
  Sender: FDA-Public Use
  Company Number: JP-BRISTOL-MYERS SQUIBB COMPANY-12825295

PATIENT

DRUGS (1)
  1. VP-16 [Suspect]
     Indication: BLOOD DISORDER
     Route: 041

REACTIONS (1)
  - PULMONARY MYCOSIS [None]
